FAERS Safety Report 4787077-9 (Version None)
Quarter: 2005Q3

REPORT INFORMATION
  Report Type: 
  Country: None (occurrence: None)
  Receive Date: 20050930
  Receipt Date: 20050913
  Transmission Date: 20060218
  Serious: Yes (Other)
  Sender: FDA-Public Use
  Company Number: DKLU1016814

PATIENT
  Age: 18 Year
  Sex: Female

DRUGS (2)
  1. RISPERIDONE [Suspect]
     Indication: SCHIZOPHRENIA
     Dosage: SEE IMAGE
     Route: 048
     Dates: start: 20050723, end: 20050801
  2. RISPERIDONE [Suspect]
     Indication: SCHIZOPHRENIA
     Dosage: SEE IMAGE
     Route: 048
     Dates: start: 20050806

REACTIONS (3)
  - HALLUCINATION, VISUAL [None]
  - SELF MUTILATION [None]
  - SUICIDE ATTEMPT [None]
